FAERS Safety Report 12600499 (Version 1)
Quarter: 2016Q3

REPORT INFORMATION
  Report Type: Report from Study
  Country: BR (occurrence: BR)
  Receive Date: 20160727
  Receipt Date: 20160727
  Transmission Date: 20161109
  Serious: Yes (Disabling, Other)
  Sender: FDA-Public Use
  Company Number: BR-ABBVIE-16P-020-1686873-00

PATIENT
  Age: 73 Year
  Sex: Female
  Weight: 76 kg

DRUGS (3)
  1. SYNTHROID [Suspect]
     Active Substance: LEVOTHYROXINE SODIUM
     Indication: HYPOTHYROIDISM
     Dosage: FASTING
     Route: 048
     Dates: start: 20120202
  2. ORLISTAT [Concomitant]
     Active Substance: ORLISTAT
     Indication: GASTROINTESTINAL DISORDER
     Dosage: DAILY DOSE: 2 TABLET; BEFORE LUNCH / BEFORE DINNER
     Dates: start: 2011
  3. BENICAR [Concomitant]
     Active Substance: OLMESARTAN MEDOXOMIL
     Indication: BLOOD PRESSURE ABNORMAL
     Dates: start: 2006

REACTIONS (12)
  - Nervous system disorder [Unknown]
  - Hypoaesthesia [Unknown]
  - Alopecia [Recovering/Resolving]
  - Cardiovascular disorder [Not Recovered/Not Resolved]
  - Memory impairment [Unknown]
  - Hypertension [Unknown]
  - Abasia [Unknown]
  - Bone neoplasm [Unknown]
  - Blood uric acid increased [Not Recovered/Not Resolved]
  - Diabetes mellitus [Not Recovered/Not Resolved]
  - Blood pressure increased [Recovered/Resolved]
  - Thyroid disorder [Unknown]

NARRATIVE: CASE EVENT DATE: 201601
